FAERS Safety Report 8103859-X (Version None)
Quarter: 2011Q4

REPORT INFORMATION
  Report Type: 
  Country: None (occurrence: None)
  Receive Date: 20111222
  Receipt Date: 20111121
  Transmission Date: 20120403
  Serious: Yes (Hospitalization)
  Sender: FDA-Public Use
  Company Number: UTC-012669

PATIENT
  Age: 50 Year
  Sex: Female
  Weight: 54.4 kg

DRUGS (3)
  1. TYVASO [Suspect]
     Indication: PULMONARY HYPERTENSION
     Dosage: 18 TO 54 MICROGRAMS (4 IN 1 D), INHALATION
     Route: 055
     Dates: start: 20111020
  2. ADCIRCA [Concomitant]
  3. TRACLEER [Concomitant]

REACTIONS (1)
  - SWELLING [None]
